FAERS Safety Report 5396587-5 (Version None)
Quarter: 2007Q3

REPORT INFORMATION
  Report Type: 
  Country: None (occurrence: None)
  Receive Date: 20070725
  Receipt Date: 20070716
  Transmission Date: 20080115
  Serious: Yes (Death)
  Sender: FDA-Public Use
  Company Number: US-JNJFOC-20060501221

PATIENT
  Sex: Female
  Weight: 30 kg

DRUGS (14)
  1. CHILDREN'S MOTRIN [Suspect]
     Dosage: AS NECESSARY
  2. CHILDREN'S MOTRIN [Suspect]
     Indication: DRUG USE FOR UNKNOWN INDICATION
  3. ADVIL LIQUI-GELS [Suspect]
     Indication: DRUG USE FOR UNKNOWN INDICATION
  4. FLAGYL [Suspect]
     Indication: CLOSTRIDIAL INFECTION
  5. DILANTIN KAPSEAL [Suspect]
     Dosage: REDUCED TO SUB-THERAPEUTIC LEVELS
  6. DILANTIN KAPSEAL [Suspect]
     Indication: CONVULSION
  7. COLACE [Concomitant]
  8. PEPCID [Concomitant]
  9. DECADRON [Concomitant]
  10. TYLENOL (CAPLET) [Concomitant]
  11. PROVENTIL [Concomitant]
  12. VANCOMYCIN [Concomitant]
     Indication: PNEUMONIA
  13. CEFEPIME [Concomitant]
     Indication: PNEUMONIA
  14. CEFEPIME [Concomitant]
     Indication: PYREXIA

REACTIONS (1)
  - TOXIC EPIDERMAL NECROLYSIS [None]
